FAERS Safety Report 9153137 (Version 1)
Quarter: 2013Q1

REPORT INFORMATION
  Report Type: Spontaneous
  Country: US (occurrence: None)
  Receive Date: 20130304
  Receipt Date: 20130304
  Transmission Date: 20140127
  Serious: Yes (Other)
  Sender: FDA-Public Use
  Company Number: None

PATIENT
  Age: 62 Year
  Sex: Female

DRUGS (1)
  1. MYCOPHENOLATE [Suspect]
     Indication: RENAL TRANSPLANT
     Route: 048
     Dates: start: 20120203

REACTIONS (2)
  - Incorrect dose administered [None]
  - Treatment noncompliance [None]
